FAERS Safety Report 5835434-1 (Version None)
Quarter: 2008Q3

REPORT INFORMATION
  Report Type: 
  Country: None (occurrence: None)
  Receive Date: 20080804
  Receipt Date: 20080723
  Transmission Date: 20090109
  Serious: Yes (Death, Other)
  Sender: FDA-Public Use
  Company Number: A-US2006-12034

PATIENT
  Age: 51 Year
  Sex: Female
  Weight: 57.1 kg

DRUGS (12)
  1. TRACLEER [Suspect]
     Indication: PULMONARY HYPERTENSION
     Dosage: 125 MG, BID, ORAL, 62.5 MG, BID, ORAL, 62.5 MG, BID, ORAL
     Route: 048
     Dates: start: 20040502, end: 20040601
  2. TRACLEER [Suspect]
     Indication: PULMONARY HYPERTENSION
     Dosage: 125 MG, BID, ORAL, 62.5 MG, BID, ORAL, 62.5 MG, BID, ORAL
     Route: 048
     Dates: start: 20040602, end: 20051201
  3. TRACLEER [Suspect]
     Indication: PULMONARY HYPERTENSION
     Dosage: 125 MG, BID, ORAL, 62.5 MG, BID, ORAL, 62.5 MG, BID, ORAL
     Route: 048
     Dates: start: 20051201, end: 20060124
  4. LASIX [Concomitant]
  5. POTASSIUM CHLORIDE [Concomitant]
  6. COUMADIN [Concomitant]
  7. BUMEX [Concomitant]
  8. POTASSIUM CHLORIDE [Concomitant]
  9. PROTONIX [Concomitant]
  10. DIGOXIN [Concomitant]
  11. MULTIVITAMIN [Concomitant]
  12. NITROGLYCERIN [Concomitant]

REACTIONS (7)
  - ALANINE AMINOTRANSFERASE INCREASED [None]
  - ASPARTATE AMINOTRANSFERASE INCREASED [None]
  - BLOOD ALKALINE PHOSPHATASE INCREASED [None]
  - BLOOD BILIRUBIN INCREASED [None]
  - DISEASE PROGRESSION [None]
  - LIVER FUNCTION TEST ABNORMAL [None]
  - PULMONARY HYPERTENSION [None]
